APPROVED DRUG PRODUCT: DYNAPEN
Active Ingredient: DICLOXACILLIN SODIUM
Strength: EQ 62.5MG BASE/5ML
Dosage Form/Route: FOR SUSPENSION;ORAL
Application: N050337 | Product #002
Applicant: APOTHECON INC DIV BRISTOL MYERS SQUIBB
Approved: Approved Prior to Jan 1, 1982 | RLD: No | RS: No | Type: DISCN